FAERS Safety Report 14721191 (Version 1)
Quarter: 2018Q2

REPORT INFORMATION
  Report Type: Spontaneous
  Country: DE (occurrence: DE)
  Receive Date: 20180405
  Receipt Date: 20180405
  Transmission Date: 20180711
  Serious: Yes (Life-Threatening, Hospitalization)
  Sender: FDA-Public Use
  Company Number: DE-WEST-WARD PHARMACEUTICALS CORP.-DE-H14001-18-02576

PATIENT
  Age: 81 Year
  Sex: Male
  Weight: 72 kg

DRUGS (20)
  1. LOPEDIUM [Concomitant]
     Active Substance: LOPERAMIDE
     Indication: DIARRHOEA
     Dosage: AS REQUIRED
     Route: 048
  2. 5-FLUOROURACIL [Concomitant]
     Active Substance: FLUOROURACIL
     Indication: COLORECTAL CANCER
     Dosage: DATE OF LAST DOSE PRIOR TO EVENT- 10/SEP/2014
     Route: 040
     Dates: start: 20140408
  3. CAPECITABINE. [Suspect]
     Active Substance: CAPECITABINE
     Indication: COLORECTAL CANCER
     Dosage: DAILY FOR TWO WEEKS FOLLOWED BY A WEEK PAUSE
     Route: 048
     Dates: start: 20141009, end: 20141022
  4. CAPECITABINE. [Suspect]
     Active Substance: CAPECITABINE
     Dosage: DAILY FOR TWO WEEKS FOLLOWED BY A WEEK PAUSE
     Route: 048
     Dates: start: 20150122
  5. AMLODIPIN [Concomitant]
     Active Substance: AMLODIPINE BESYLATE
     Indication: HYPERTENSION
     Route: 048
     Dates: start: 20140521
  6. NOVALGIN (METAMIZOLE SODIUM) [Concomitant]
     Active Substance: METAMIZOLE SODIUM
     Indication: ABDOMINAL PAIN LOWER
     Dosage: AS REQUIRED
     Route: 048
  7. CAPECITABINE. [Suspect]
     Active Substance: CAPECITABINE
     Dosage: DAILY FOR TWO WEEKS FOLLOWED BY A WEEK PAUSE
     Route: 048
     Dates: start: 20150303, end: 20150316
  8. CAPECITABINE. [Suspect]
     Active Substance: CAPECITABINE
     Dosage: DAILY FOR TWO WEEKS FOLLOWED BY A WEEK PAUSE
     Route: 048
     Dates: start: 20150415, end: 20150505
  9. BEVACIZUMAB. [Suspect]
     Active Substance: BEVACIZUMAB
     Route: 042
     Dates: start: 20150325, end: 20150414
  10. ARANESP [Suspect]
     Active Substance: DARBEPOETIN ALFA
     Indication: ANAEMIA OF MALIGNANT DISEASE
     Route: 058
     Dates: start: 20140408
  11. 5-FLUOROURACIL [Concomitant]
     Active Substance: FLUOROURACIL
     Dosage: DATE OF LAST DOSE PRIOR TO EVENT- 12/SEP/2014
     Route: 041
     Dates: start: 20140408
  12. CAPECITABINE. [Suspect]
     Active Substance: CAPECITABINE
     Dosage: DAILY FOR TWO WEEKS FOLLOWED BY A WEEK PAUSE
     Route: 048
     Dates: start: 20150325, end: 20150414
  13. BEVACIZUMAB. [Suspect]
     Active Substance: BEVACIZUMAB
     Indication: COLORECTAL CANCER METASTATIC
     Route: 042
     Dates: start: 20140423
  14. CAPECITABINE. [Suspect]
     Active Substance: CAPECITABINE
     Dosage: DAILY FOR TWO WEEKS FOLLOWED BY A WEEK PAUSE
     Route: 048
     Dates: start: 20141030, end: 20141112
  15. CAPECITABINE. [Suspect]
     Active Substance: CAPECITABINE
     Dosage: DAILY FOR TWO WEEKS FOLLOWED BY A WEEK PAUSE
     Route: 048
     Dates: start: 20141211, end: 20141224
  16. CAPECITABINE. [Suspect]
     Active Substance: CAPECITABINE
     Dosage: DAILY FOR TWO WEEKS FOLLOWED BY A WEEK PAUSE
     Route: 048
     Dates: start: 20150212, end: 20150225
  17. FOLINIC ACID [Concomitant]
     Active Substance: LEUCOVORIN
     Indication: COLORECTAL CANCER
     Dosage: DATE OF LAST DOSE PRIOR TO EVENT- 10/SEP/2014
     Route: 042
     Dates: start: 20140408
  18. OXALIPLATIN. [Concomitant]
     Active Substance: OXALIPLATIN
     Indication: COLORECTAL CANCER
     Dosage: DATE OF LAST DOSE PRIOR TO EVENT- 10/SEP/2014
     Route: 042
     Dates: start: 20140408
  19. CAPECITABINE. [Suspect]
     Active Substance: CAPECITABINE
     Dosage: DAILY FOR TWO WEEKS FOLLOWED BY A WEEK PAUSE
     Route: 048
     Dates: start: 20141120, end: 20141203
  20. CAPECITABINE. [Suspect]
     Active Substance: CAPECITABINE
     Dosage: DAILY FOR TWO WEEKS FOLLOWED BY A WEEK PAUSE
     Route: 048
     Dates: start: 20150105, end: 20150119

REACTIONS (2)
  - Subileus [Recovered/Resolved with Sequelae]
  - Large intestine perforation [Unknown]

NARRATIVE: CASE EVENT DATE: 20150507
